FAERS Safety Report 12355726 (Version 2)
Quarter: 2016Q2

REPORT INFORMATION
  Report Type: Report from Study
  Country: AR (occurrence: AR)
  Receive Date: 20160511
  Receipt Date: 20160609
  Transmission Date: 20160815
  Serious: Yes (Hospitalization, Other)
  Sender: FDA-Public Use
  Company Number: PHHY2016AR019687

PATIENT
  Age: 61 Year
  Sex: Female

DRUGS (6)
  1. SERTRALINE [Concomitant]
     Active Substance: SERTRALINE HYDROCHLORIDE
     Indication: PRODUCT USED FOR UNKNOWN INDICATION
     Route: 065
  2. ALPRAZOLAM. [Concomitant]
     Active Substance: ALPRAZOLAM
     Indication: SLEEP DISORDER
     Dosage: UNK UNK, QHS
     Route: 065
  3. AFINITOR [Suspect]
     Active Substance: EVEROLIMUS
     Dosage: 1 DF, QOD
     Route: 065
     Dates: start: 20160402
  4. AFINITOR [Suspect]
     Active Substance: EVEROLIMUS
     Dosage: 10 MG, QD
     Route: 065
     Dates: start: 20160219, end: 20160319
  5. EXEMESTANE. [Concomitant]
     Active Substance: EXEMESTANE
     Indication: PRODUCT USED FOR UNKNOWN INDICATION
     Route: 065
  6. AFINITOR [Suspect]
     Active Substance: EVEROLIMUS
     Indication: BREAST CANCER
     Dosage: 10 MG, QD
     Route: 065
     Dates: start: 20160126

REACTIONS (28)
  - Dyspnoea [Recovering/Resolving]
  - Tachycardia [Recovered/Resolved]
  - Eyelid oedema [Unknown]
  - Breast pain [Recovered/Resolved]
  - Aphthous ulcer [Recovered/Resolved]
  - Decreased appetite [Not Recovered/Not Resolved]
  - Choking [Unknown]
  - Mouth ulceration [Recovered/Resolved]
  - Peripheral swelling [Recovered/Resolved]
  - Fixed drug eruption [Unknown]
  - Asphyxia [Recovering/Resolving]
  - Urinary tract infection bacterial [Recovered/Resolved]
  - Flushing [Unknown]
  - Oropharyngeal pain [Recovered/Resolved]
  - Rash [Unknown]
  - Pruritus generalised [Unknown]
  - Product use issue [Unknown]
  - Breast discolouration [Recovered/Resolved]
  - Pain in extremity [Recovered/Resolved]
  - Movement disorder [Not Recovered/Not Resolved]
  - Stomatitis [Recovered/Resolved]
  - Insomnia [Not Recovered/Not Resolved]
  - Pyrexia [Recovered/Resolved]
  - Breast swelling [Recovered/Resolved]
  - Pharyngeal oedema [Not Recovered/Not Resolved]
  - Mucosal inflammation [Recovering/Resolving]
  - Acne [Not Recovered/Not Resolved]
  - Epistaxis [Recovered/Resolved]

NARRATIVE: CASE EVENT DATE: 20160206
